FAERS Safety Report 26197019 (Version 1)
Quarter: 2025Q4

REPORT INFORMATION
  Report Type: Spontaneous
  Country: US (occurrence: US)
  Receive Date: 20251224
  Receipt Date: 20251224
  Transmission Date: 20260117
  Serious: No
  Sender: GLAND PHARMA LTD
  Company Number: US-GLANDPHARMA-US-2025GLNSPO02112

PATIENT
  Sex: Male

DRUGS (1)
  1. GLYCOPYRROLATE [Suspect]
     Active Substance: GLYCOPYRROLATE
     Indication: Secretion discharge
     Route: 065
     Dates: end: 202511

REACTIONS (3)
  - Mucosal dryness [Unknown]
  - Bronchial secretion retention [Unknown]
  - Drug ineffective [Unknown]
